FAERS Safety Report 17585263 (Version 3)
Quarter: 2020Q2

REPORT INFORMATION
  Report Type: Report from Study
  Country: None (occurrence: CO)
  Receive Date: 20200326
  Receipt Date: 20200525
  Transmission Date: 20200713
  Serious: Yes (Hospitalization)
  Sender: FDA-Public Use
  Company Number: CO-ABBVIE-20K-036-3336969-00

PATIENT
  Age: 38 Year
  Sex: Male
  Weight: 54 kg

DRUGS (2)
  1. ZEMPLAR [Suspect]
     Active Substance: PARICALCITOL
     Indication: HYPERPARATHYROIDISM SECONDARY
     Route: 042
     Dates: start: 20150917, end: 20200229
  2. ZEMPLAR [Suspect]
     Active Substance: PARICALCITOL
     Indication: CHRONIC KIDNEY DISEASE

REACTIONS (7)
  - Pain in extremity [Recovering/Resolving]
  - Device related sepsis [Unknown]
  - Venous thrombosis [Recovering/Resolving]
  - Renal disorder [Unknown]
  - Peripheral swelling [Recovering/Resolving]
  - Endocarditis [Unknown]
  - Pneumonia [Unknown]

NARRATIVE: CASE EVENT DATE: 2020
